FAERS Safety Report 9448531 (Version 1)
Quarter: 2013Q3

REPORT INFORMATION
  Report Type: Spontaneous
  Country: JP (occurrence: JP)
  Receive Date: 20130808
  Receipt Date: 20130808
  Transmission Date: 20140515
  Serious: Yes (Death)
  Sender: FDA-Public Use
  Company Number: JP-ELI_LILLY_AND_COMPANY-JP201308001491

PATIENT
  Age: 85 Year
  Sex: Female

DRUGS (1)
  1. HUMULIN REGULAR [Suspect]
     Indication: LATENT AUTOIMMUNE DIABETES IN ADULTS
     Route: 058

REACTIONS (3)
  - Autoimmune hepatitis [Fatal]
  - Blood glucose increased [Unknown]
  - Anti-insulin antibody positive [Unknown]
